FAERS Safety Report 4383788-8 (Version None)
Quarter: 2004Q2

REPORT INFORMATION
  Report Type: 
  Country: None (occurrence: None)
  Receive Date: 20040608
  Receipt Date: 20031007
  Transmission Date: 20050107
  Serious: Yes (Other)
  Sender: FDA-Public Use
  Company Number: 200313666BCC

PATIENT
  Age: 13 Year
  Sex: Male
  Weight: 56.6996 kg

DRUGS (1)
  1. ALEVE [Suspect]
     Indication: ANALGESIC EFFECT
     Dosage: 220 MG, ONCE, ORAL
     Route: 048
     Dates: start: 20031006

REACTIONS (4)
  - HYPERSENSITIVITY [None]
  - LOCAL SWELLING [None]
  - SWELLING FACE [None]
  - URTICARIA [None]
